FAERS Safety Report 19961090 (Version 5)
Quarter: 2022Q1

REPORT INFORMATION
  Report Type: Spontaneous
  Country: US (occurrence: US)
  Receive Date: 20211016
  Receipt Date: 20220131
  Transmission Date: 20220423
  Serious: Yes (Other)
  Sender: FDA-Public Use
  Company Number: US-LUPIN PHARMACEUTICALS INC.-2021-19478

PATIENT
  Age: 58 Year
  Sex: Male
  Weight: 79.365 kg

DRUGS (4)
  1. HYDROCODONE BITARTRATE AND ACETAMINOPHEN [Suspect]
     Active Substance: ACETAMINOPHEN\HYDROCODONE BITARTRATE
     Indication: Cancer pain
     Dosage: 02 DOSAGE FORM, TID (2 TABLETS EVERY 6 HOURS TO 8 HOURS)
     Route: 065
     Dates: start: 202011
  2. HYDROCODONE BITARTRATE AND ACETAMINOPHEN [Suspect]
     Active Substance: ACETAMINOPHEN\HYDROCODONE BITARTRATE
     Dosage: 02 DOSAGE FORM, TID (2.5 WEEKS AGO, HE WAS USING A DIFFERENT REFILL WHICH WAS WORKING FOR HIM)
     Route: 065
     Dates: start: 202109
  3. HYDROCODONE BITARTRATE AND ACETAMINOPHEN [Suspect]
     Active Substance: ACETAMINOPHEN\HYDROCODONE BITARTRATE
     Dosage: 02 DOSAGE FORM, TID (RECENT MEDICATION WAS NOT WORKING)
     Route: 065
     Dates: start: 202109, end: 20210930
  4. FENTANYL [Concomitant]
     Active Substance: FENTANYL
     Indication: Cancer pain
     Dosage: 25 MCG
     Route: 065

REACTIONS (3)
  - Weight decreased [Unknown]
  - Drug ineffective [Unknown]
  - Suspected counterfeit product [Unknown]

NARRATIVE: CASE EVENT DATE: 20210901
